FAERS Safety Report 6615390-9 (Version None)
Quarter: 2010Q1

REPORT INFORMATION
  Report Type: 
  Country: None (occurrence: None)
  Receive Date: 20100305
  Receipt Date: 20091023
  Transmission Date: 20100710
  Serious: No
  Sender: FDA-Public Use
  Company Number: A0811065A

PATIENT
  Age: 42 Year
  Sex: Female
  Weight: 152.3 kg

DRUGS (8)
  1. REQUIP [Suspect]
     Indication: RESTLESS LEGS SYNDROME
     Dosage: 1MG AT NIGHT
     Route: 048
     Dates: start: 20090901, end: 20091001
  2. BLOOD PRESSURE MEDICATION [Concomitant]
  3. MULTIPLE MEDICATIONS [Concomitant]
  4. HYDROCHLOROTHIAZIDE [Concomitant]
     Indication: HYPERTENSION
     Dosage: 25MG IN THE MORNING
     Route: 048
     Dates: start: 20090601
  5. LISINOPRIL [Concomitant]
     Indication: HYPERTENSION
     Dosage: 20MG IN THE MORNING
     Route: 048
     Dates: start: 20090601
  6. GEMFIBROZIL [Concomitant]
     Dosage: 600MG TWICE PER DAY
     Route: 048
     Dates: start: 20090601
  7. LASIX [Concomitant]
     Dosage: 40MG AS REQUIRED
     Route: 048
     Dates: start: 20090401
  8. POTASSIUM CHLORIDE [Concomitant]
     Dosage: 10MCG AS REQUIRED
     Route: 048

REACTIONS (3)
  - ABDOMINAL DISCOMFORT [None]
  - MALAISE [None]
  - SOMNOLENCE [None]
